FAERS Safety Report 17004482 (Version 3)
Quarter: 2020Q1

REPORT INFORMATION
  Report Type: Spontaneous
  Country: US (occurrence: US)
  Receive Date: 20191107
  Receipt Date: 20200131
  Transmission Date: 20200409
  Serious: No
  Sender: FDA-Public Use
  Company Number: US-PFIZER INC-2015444818

PATIENT
  Age: 63 Year
  Sex: Female
  Weight: 94.8 kg

DRUGS (33)
  1. CLONAZEPAM. [Concomitant]
     Active Substance: CLONAZEPAM
     Indication: PANIC ATTACK
  2. FENOFIBRATE. [Concomitant]
     Active Substance: FENOFIBRATE
     Dosage: 160 MG, 1X/DAY (EVENING)
     Route: 048
  3. DULOXETINE. [Concomitant]
     Active Substance: DULOXETINE
     Dosage: 120 MG, DAILY (MORNING) [2 - 60MG CAPSULES]
     Route: 048
  4. TIZANIDINE HCL [Concomitant]
     Active Substance: TIZANIDINE HYDROCHLORIDE
     Dosage: 4 MG, 3X/DAY (EVERY 8 HOURS)
  5. BIOTIN [Concomitant]
     Active Substance: BIOTIN
     Dosage: 5000 UG, DAILY
  6. MELATONIN [Concomitant]
     Active Substance: MELATONIN
     Dosage: UNK UNK, 1X/DAY (9 TO 10 MG AT BEDTIME)
     Route: 048
  7. LORATADINE. [Concomitant]
     Active Substance: LORATADINE
     Dosage: 10 MG, DAILY
     Route: 048
  8. VITAMIN C [Concomitant]
     Active Substance: ASCORBIC ACID
     Dosage: 1000 MG, DAILY
     Route: 048
  9. BUSPIRONE HCL [Concomitant]
     Active Substance: BUSPIRONE HYDROCHLORIDE
     Dosage: 5 MG, 2X/DAY
  10. PROCTOSOL HC [Concomitant]
     Dosage: 2.5 %, AS NEEDED
     Route: 054
  11. VITAMIN D3 [Concomitant]
     Active Substance: CHOLECALCIFEROL
     Dosage: 1000 IU, DAILY
     Route: 048
  12. ONE-A-DAY NOS [Concomitant]
     Active Substance: MINERALS\VITAMINS
     Dosage: 1 DF, DAILY
  13. ACETYLSALICYLIC ACID [Concomitant]
     Active Substance: ASPIRIN
     Dosage: 81 MG, 1X/DAY (PM)
  14. MACROGOL 3350 [Concomitant]
     Active Substance: POLYETHYLENE GLYCOL 3350
     Dosage: UNK UNK, AS NEEDED (1 OZ. (CAP FULL))
  15. NYSTATIN. [Concomitant]
     Active Substance: NYSTATIN
     Dosage: UNK UNK, AS NEEDED (100,000 USP UNITS PER GRAM)(UNDER BREASTS)
  16. VITAMIN B COMPLEX [Concomitant]
     Active Substance: CYANOCOBALAMIN\DEXPANTHENOL\NIACINAMIDE\PYRIDOXINE HYDROCHLORIDE\RIBOFLAVIN 5^-PHOSPHATE SODIUM\THIAMINE HYDROCHLORIDE\VITAMIN B COMPLEX
     Dosage: 1 DF, DAILY
     Route: 048
  17. SKELAXIN [Suspect]
     Active Substance: METAXALONE
     Indication: MUSCLE SPASMS
     Dosage: 800 MG, AS NEEDED (3 X D PRN)
     Route: 048
  18. OMEPRAZOLE. [Concomitant]
     Active Substance: OMEPRAZOLE
     Dosage: 20 MG, 2X/DAY
     Route: 048
  19. ASMANEX [Concomitant]
     Active Substance: MOMETASONE FUROATE
     Dosage: 220 UG, UNK (INHALE 2-3 PUFFS INTO THE LUNGS IN AM+ PM)
     Route: 055
  20. GAS-X [Concomitant]
     Active Substance: DIMETHICONE
     Dosage: UNK UNK, AS NEEDED
  21. CLONAZEPAM. [Concomitant]
     Active Substance: CLONAZEPAM
     Indication: ANXIETY
     Dosage: UNK UNK, AS NEEDED (TAKE 2 TABLETS (0.5-1 MG TOTAL) BY MOUTH NIGHTLY + PRN)
     Route: 048
  22. SKELAXIN [Suspect]
     Active Substance: METAXALONE
     Indication: FIBROMYALGIA
     Dosage: 800 MG, 3X/DAY
     Route: 048
  23. HYDROCORT AC [Concomitant]
     Dosage: 25 MG, AS NEEDED (PRN / 1 TO 2 TIMES DAILY)
  24. CALCIUM 600+D3 [Concomitant]
     Active Substance: CALCIUM CARBONATE\VITAMIN D
     Dosage: 1600 IU, DAILY [2 TABLETS]
     Route: 048
  25. CALCIUM 600+D3 [Concomitant]
     Active Substance: CALCIUM CARBONATE\VITAMIN D
     Dosage: 1200 MG, UNK
  26. DOCUSATE SODIUM. [Concomitant]
     Active Substance: DOCUSATE SODIUM
     Indication: ABNORMAL FAECES
     Dosage: 100 MG, 3X/DAY
     Route: 048
  27. PROVENTIL HFA [Concomitant]
     Active Substance: ALBUTEROL SULFATE
     Dosage: 45 UG, AS NEEDED (INHALE 2 PUFFS INTO THE LUNGS MORNING AND BEDTIME)
     Route: 055
  28. LISINOPRIL. [Concomitant]
     Active Substance: LISINOPRIL
     Dosage: 10 MG, 1X/DAY (1 TABLET IN PM)
     Route: 048
  29. ACETAMINOPHEN AND CODEINE [Concomitant]
     Active Substance: ACETAMINOPHEN\CODEINE PHOSPHATE
     Dosage: UNK, AS NEEDED (1 OR 2 TABLETS EVERY 4 TO 6 HOURS AS NEEDED)
     Route: 048
  30. LEVOTHYROXINE SODIUM. [Concomitant]
     Active Substance: LEVOTHYROXINE SODIUM
     Dosage: 50 UG, 1X/DAY (MORNING)
     Route: 048
  31. BENGAY ARTHRITIS PAIN RELIEVING [Concomitant]
     Active Substance: MENTHOL\METHYL SALICYLATE
     Dosage: UNK UNK, AS NEEDED (APPLY TO AFFECTED AREA AS NEEDED)
  32. DEXTROMETHORPHAN HYDROBROMIDE W/GUAIFENESIN [Concomitant]
     Active Substance: DEXTROMETHORPHAN HYDROBROMIDE\GUAIFENESIN
     Dosage: UNK UNK, AS NEEDED (AM + PM)
     Route: 048
  33. CENTRUM [Concomitant]
     Active Substance: VITAMINS
     Dosage: 2 DF, DAILY

REACTIONS (4)
  - Condition aggravated [Not Recovered/Not Resolved]
  - Bronchitis [Recovered/Resolved]
  - Inflammation [Unknown]
  - Immune system disorder [Unknown]

NARRATIVE: CASE EVENT DATE: 20191003
